FAERS Safety Report 7271632-0 (Version None)
Quarter: 2011Q1

REPORT INFORMATION
  Report Type: 
  Country: None (occurrence: None)
  Receive Date: 20110203
  Receipt Date: 20110124
  Transmission Date: 20110831
  Serious: Yes (Hospitalization, Other)
  Sender: FDA-Public Use
  Company Number: JP-CELGENEUS-087-21880-10111058

PATIENT
  Sex: Female

DRUGS (11)
  1. LENADEX [Suspect]
     Route: 048
     Dates: start: 20101203, end: 20101217
  2. DECADRON [Concomitant]
     Indication: MULTIPLE MYELOMA
     Route: 041
     Dates: start: 20101001, end: 20101004
  3. DECADRON [Concomitant]
     Route: 041
     Dates: start: 20101009, end: 20101012
  4. ALTAT [Concomitant]
     Indication: PROPHYLAXIS
     Route: 065
     Dates: start: 20101001, end: 20101002
  5. DECADRON [Concomitant]
     Route: 041
     Dates: start: 20101017, end: 20101018
  6. ITRIZOLE [Concomitant]
     Indication: PROPHYLAXIS
     Route: 048
     Dates: start: 20101001, end: 20101103
  7. REVLIMID [Suspect]
     Route: 048
     Dates: start: 20101008, end: 20101017
  8. LENADEX [Suspect]
     Indication: MULTIPLE MYELOMA
     Route: 048
     Dates: start: 20101105, end: 20101119
  9. ZYLORIC [Concomitant]
     Indication: HYPERURICAEMIA
     Route: 065
     Dates: start: 20101001, end: 20101103
  10. REVLIMID [Suspect]
     Indication: MULTIPLE MYELOMA
     Route: 048
     Dates: start: 20101001, end: 20101007
  11. BAKTAR [Concomitant]
     Indication: PROPHYLAXIS
     Dosage: 1T
     Route: 065
     Dates: start: 20101001, end: 20101103

REACTIONS (5)
  - PLATELET COUNT DECREASED [None]
  - GASTROINTESTINAL HAEMORRHAGE [None]
  - HAEMORRHAGE [None]
  - THROMBOCYTOPENIA [None]
  - NEUTROPHIL COUNT DECREASED [None]
